FAERS Safety Report 15513452 (Version 1)
Quarter: 2018Q4

REPORT INFORMATION
  Report Type: Spontaneous
  Country: US (occurrence: US)
  Receive Date: 20181016
  Receipt Date: 20181016
  Transmission Date: 20190205
  Serious: Yes (Other)
  Sender: FDA-Public Use
  Company Number: US-AMGEN-USASP2018068105

PATIENT
  Age: 54 Year
  Sex: Female
  Weight: 90.7 kg

DRUGS (3)
  1. BENADRYL [Concomitant]
     Active Substance: DIPHENHYDRAMINE HYDROCHLORIDE
     Indication: ANAPHYLACTIC REACTION
     Dosage: UNK
     Route: 065
     Dates: start: 20180511
  2. NEULASTA [Suspect]
     Active Substance: PEGFILGRASTIM
     Indication: PROPHYLAXIS
     Dosage: 6 MG, Q2WK
     Route: 058
     Dates: start: 20180418, end: 20180524
  3. NEULASTA [Suspect]
     Active Substance: PEGFILGRASTIM
     Dosage: 6 MG, Q2WK
     Route: 058
     Dates: start: 201805, end: 201805

REACTIONS (5)
  - Anxiety [Unknown]
  - Anaphylactic reaction [Unknown]
  - Drug hypersensitivity [Recovered/Resolved]
  - Pain [Unknown]
  - Headache [Unknown]

NARRATIVE: CASE EVENT DATE: 20180418
